FAERS Safety Report 13851621 (Version 1)
Quarter: 2017Q3

REPORT INFORMATION
  Report Type: Spontaneous
  Country: US (occurrence: US)
  Receive Date: 20170809
  Receipt Date: 20170809
  Transmission Date: 20171127
  Serious: Yes (Other)
  Sender: FDA-Public Use
  Company Number: US-SA-2017SA145312

PATIENT
  Sex: Male
  Weight: 63.5 kg

DRUGS (13)
  1. FABRAZYME [Suspect]
     Active Substance: AGALSIDASE BETA
     Indication: FABRY^S DISEASE
     Route: 041
  2. CEFAZOLIN [Concomitant]
     Active Substance: CEFAZOLIN
     Indication: PREMEDICATION
     Dosage: DOSE: 1 DOSE, FREQUENCY: AS DIRECTED
     Route: 065
     Dates: start: 20170609
  3. DIPHENHYDRAMINE. [Concomitant]
     Active Substance: DIPHENHYDRAMINE
     Indication: PREMEDICATION
     Route: 048
     Dates: start: 20170410
  4. FOLIC ACID. [Concomitant]
     Active Substance: FOLIC ACID
     Dosage: DOSE: 1 TABLET
     Route: 048
     Dates: start: 20170123
  5. ACETAMINOPHEN. [Concomitant]
     Active Substance: ACETAMINOPHEN
     Indication: PREMEDICATION
     Route: 048
     Dates: start: 20170410
  6. HEPARIN [Concomitant]
     Active Substance: HEPARIN SODIUM
     Indication: FLUSHING
     Dosage: FREQUENCY: AS DIRECTED DOSE:100 INTERNATIONAL UNIT(S)/MILLILITRE
     Route: 065
     Dates: start: 20170410
  7. ASPIRIN. [Concomitant]
     Active Substance: ASPIRIN
     Dosage: DOSE: 1 TABLET
     Route: 048
     Dates: start: 20170123
  8. NORMAL SALINE [Concomitant]
     Active Substance: SODIUM CHLORIDE
     Indication: MEDICATION DILUTION
     Dosage: FREQUENCY AS DIRECTED
     Route: 065
     Dates: start: 20170410
  9. PROGRAF [Concomitant]
     Active Substance: TACROLIMUS\TACROLIMUS ANHYDROUS
     Dosage: DOSE: 1.5 TAB
     Route: 048
     Dates: start: 20170123
  10. PREDNISONE. [Concomitant]
     Active Substance: PREDNISONE
     Dosage: DOSE: 1 TAB
     Route: 048
     Dates: start: 20170123
  11. DIPHENHYDRAMINE. [Concomitant]
     Active Substance: DIPHENHYDRAMINE
     Indication: ANAPHYLACTIC REACTION
     Route: 048
     Dates: start: 20170410
  12. EPIPEN [Concomitant]
     Active Substance: EPINEPHRINE
     Indication: ANAPHYLACTIC REACTION
     Route: 065
     Dates: start: 20170410
  13. METOPROLOL SUCCINATE. [Concomitant]
     Active Substance: METOPROLOL SUCCINATE
     Dosage: DOSE: 1 TABLET
     Route: 048
     Dates: start: 20170123

REACTIONS (1)
  - Sepsis [Unknown]
